FAERS Safety Report 23105186 (Version 1)
Quarter: 2023Q4

REPORT INFORMATION
  Report Type: Spontaneous
  Country: US (occurrence: None)
  Receive Date: 20231023
  Receipt Date: 20231023
  Transmission Date: 20240110
  Serious: No
  Sender: FDA-Public Use
  Company Number: None

PATIENT
  Age: 47 Year
  Sex: Female

DRUGS (1)
  1. EMGALITY [Suspect]
     Active Substance: GALCANEZUMAB-GNLM
     Indication: Cluster headache
     Dosage: OTHER FREQUENCY : 28 DAYS;?
     Route: 058
     Dates: start: 20231004

REACTIONS (6)
  - Headache [None]
  - Pain [None]
  - Ear pain [None]
  - Toothache [None]
  - Eye pain [None]
  - Temporomandibular joint syndrome [None]

NARRATIVE: CASE EVENT DATE: 20231004
